FAERS Safety Report 9632651 (Version 2)
Quarter: 2013Q4

REPORT INFORMATION
  Report Type: Spontaneous
  Country: US (occurrence: US)
  Receive Date: 20131018
  Receipt Date: 20131112
  Transmission Date: 20140711
  Serious: Yes (Other)
  Sender: FDA-Public Use
  Company Number: US-ROCHE-1290535

PATIENT
  Age: 46 Year
  Sex: Male

DRUGS (1)
  1. ACTILYSE [Suspect]
     Indication: ISCHAEMIC STROKE
     Route: 042

REACTIONS (5)
  - Periorbital haematoma [Recovered/Resolved]
  - Periorbital oedema [Recovered/Resolved]
  - Periorbital haemorrhage [Recovered/Resolved]
  - Blindness unilateral [Recovered/Resolved]
  - Exophthalmos [Recovered/Resolved]
